FAERS Safety Report 23753357 (Version 1)
Quarter: 2024Q2

REPORT INFORMATION
  Report Type: Spontaneous
  Country: US (occurrence: None)
  Receive Date: 20240417
  Receipt Date: 20240417
  Transmission Date: 20240716
  Serious: Yes (Other)
  Sender: FDA-Public Use
  Company Number: None

PATIENT
  Sex: Female
  Weight: 65.25 kg

DRUGS (18)
  1. PHENTERMINE [Suspect]
     Active Substance: PHENTERMINE
     Route: 048
     Dates: start: 20231212
  2. PANTOPRAZOLE [Suspect]
     Active Substance: PANTOPRAZOLE
     Indication: Product used for unknown indication
     Dosage: 1 TABLET DAILY ORAL ?
     Route: 048
     Dates: start: 20220808
  3. OXYBUTYNIN [Suspect]
     Active Substance: OXYBUTYNIN\OXYBUTYNIN CHLORIDE
  4. LEVOTHROID [Concomitant]
     Active Substance: LEVOTHYROXINE SODIUM
  5. LOVASTATIN [Suspect]
     Active Substance: LOVASTATIN
  6. OXYBUTYNIN [Concomitant]
     Active Substance: OXYBUTYNIN\OXYBUTYNIN CHLORIDE
  7. PANTOPRAZOLE [Concomitant]
     Active Substance: PANTOPRAZOLE
  8. PHENTERMINE [Concomitant]
     Active Substance: PHENTERMINE
  9. INDAPAMIDE [Concomitant]
     Active Substance: INDAPAMIDE
  10. POTASSIUM [Concomitant]
     Active Substance: POTASSIUM
  11. MINERALS\VITAMINS [Concomitant]
     Active Substance: MINERALS\VITAMINS
  12. monopure Omega 3 [Concomitant]
  13. CULTURELLE [Concomitant]
     Active Substance: LACTOBACILLUS RHAMNOSUS
  14. CALCIUM\VITAMIN D [Concomitant]
     Active Substance: CALCIUM\VITAMIN D
  15. CALCIUM [Concomitant]
     Active Substance: CALCIUM
  16. COENZYME Q10 [Concomitant]
     Active Substance: DIETARY SUPPLEMENT\UBIDECARENONE
  17. MINERALS\VITAMINS [Concomitant]
     Active Substance: MINERALS\VITAMINS
  18. ASPIRIN [Concomitant]
     Active Substance: ASPIRIN

REACTIONS (4)
  - Pollakiuria [None]
  - Micturition urgency [None]
  - Drug interaction [None]
  - Urinary incontinence [None]
